FAERS Safety Report 9971476 (Version 2)
Quarter: 2014Q1

REPORT INFORMATION
  Report Type: Report from Study
  Country: US (occurrence: US)
  Receive Date: 20140306
  Receipt Date: 20140306
  Transmission Date: 20141002
  Serious: No
  Sender: FDA-Public Use
  Company Number: US-ABBVIE-13P-163-1114861-00

PATIENT
  Age: 47 Year
  Sex: Female
  Weight: 52.21 kg

DRUGS (16)
  1. HUMIRA [Suspect]
     Indication: CROHN^S DISEASE
     Route: 058
     Dates: start: 20130531, end: 20130531
  2. HUMIRA [Suspect]
     Route: 058
     Dates: start: 20130614, end: 20130614
  3. HUMIRA [Suspect]
     Route: 058
     Dates: start: 20130628
  4. LOMOTIL [Concomitant]
     Indication: DIARRHOEA
  5. NEXIUM [Concomitant]
     Indication: GASTROOESOPHAGEAL REFLUX DISEASE
  6. XANAX [Concomitant]
     Indication: ANXIETY
     Dosage: AT BEDTIME
  7. XANAX [Concomitant]
     Indication: INSOMNIA
  8. LORCET [Concomitant]
     Indication: PAIN
  9. IRON [Concomitant]
     Indication: ANAEMIA
  10. ONE A DAY WOMEN^S [Concomitant]
     Indication: SUPPLEMENTATION THERAPY
  11. VITAMIN B12 [Concomitant]
     Indication: SUPPLEMENTATION THERAPY
     Dosage: FORGETS TO TAKE
  12. BENADRYL [Concomitant]
     Indication: SEASONAL ALLERGY
  13. CALCIUM + D3 [Concomitant]
     Indication: SUPPLEMENTATION THERAPY
  14. HYOSCYAMINE [Concomitant]
     Indication: PRODUCT USED FOR UNKNOWN INDICATION
     Dates: start: 20130830
  15. GAS-X [Concomitant]
     Indication: PRODUCT USED FOR UNKNOWN INDICATION
  16. FEXOFENADINE [Concomitant]
     Indication: PRODUCT USED FOR UNKNOWN INDICATION
     Dates: start: 201309

REACTIONS (11)
  - Device malfunction [Not Recovered/Not Resolved]
  - Crohn^s disease [Not Recovered/Not Resolved]
  - Headache [Not Recovered/Not Resolved]
  - Pyrexia [Not Recovered/Not Resolved]
  - Pain [Not Recovered/Not Resolved]
  - Feeling cold [Not Recovered/Not Resolved]
  - Injection site bruising [Not Recovered/Not Resolved]
  - Abdominal pain [Recovered/Resolved]
  - Migraine [Not Recovered/Not Resolved]
  - Injection site pain [Not Recovered/Not Resolved]
  - Tooth infection [Not Recovered/Not Resolved]
